FAERS Safety Report 7660267-3 (Version None)
Quarter: 2011Q3

REPORT INFORMATION
  Report Type: 
  Country: None (occurrence: None)
  Receive Date: 20110805
  Receipt Date: 20110728
  Transmission Date: 20111222
  Serious: Yes (Hospitalization, Disabling, Other)
  Sender: FDA-Public Use
  Company Number: PHEH2008US05093

PATIENT
  Sex: Female
  Weight: 47.166 kg

DRUGS (16)
  1. ADRIAMYCIN PFS [Concomitant]
     Indication: BREAST CANCER
  2. AVELOX [Concomitant]
  3. FLEXERIL [Concomitant]
     Indication: TEMPOROMANDIBULAR JOINT SYNDROME
  4. CYTOXAN [Concomitant]
     Indication: BREAST CANCER
  5. ZOLADEX [Concomitant]
  6. SENOKOT                                 /UNK/ [Concomitant]
  7. TAXOTERE [Concomitant]
     Indication: BREAST CANCER
  8. LORTAB [Concomitant]
  9. CYMBALTA [Concomitant]
     Dosage: UNK
  10. CHEMOTHERAPEUTICS NOS [Concomitant]
     Dosage: UNK
     Dates: start: 20050501, end: 20051101
  11. COMPAZINE [Concomitant]
  12. AREDIA [Suspect]
     Dosage: UNK
  13. ZOMETA [Suspect]
     Dosage: UNK
     Dates: start: 20050801, end: 20061101
  14. NEULASTA [Concomitant]
     Indication: BREAST CANCER
  15. ARIMIDEX [Concomitant]
  16. ARIMIDEX [Concomitant]

REACTIONS (40)
  - OSTEONECROSIS OF JAW [None]
  - GENERAL PHYSICAL HEALTH DETERIORATION [None]
  - SINUS DISORDER [None]
  - KETONURIA [None]
  - PAIN IN JAW [None]
  - DEPRESSION [None]
  - METASTASES TO BONE [None]
  - PURULENT DISCHARGE [None]
  - BONE DISORDER [None]
  - PAIN [None]
  - ANXIETY [None]
  - SWELLING FACE [None]
  - METASTASES TO LIVER [None]
  - HAEMANGIOMA OF LIVER [None]
  - NEUTROPENIA [None]
  - COLITIS [None]
  - OSTEOPENIA [None]
  - BREAST CYST [None]
  - GASTROOESOPHAGEAL REFLUX DISEASE [None]
  - OSTEOPOROSIS [None]
  - MENOPAUSE [None]
  - HYPOAESTHESIA [None]
  - HOT FLUSH [None]
  - MUSCULOSKELETAL DISCOMFORT [None]
  - SPLENIC CYST [None]
  - PAIN IN EXTREMITY [None]
  - MIGRAINE [None]
  - CATARACT [None]
  - TOOTH EROSION [None]
  - PHYSICAL DISABILITY [None]
  - DECREASED APPETITE [None]
  - DEFORMITY [None]
  - ABDOMINAL PAIN [None]
  - BONE PAIN [None]
  - OVERDOSE [None]
  - INFECTION [None]
  - DIARRHOEA [None]
  - AMENORRHOEA [None]
  - ALOPECIA [None]
  - INJURY [None]
